FAERS Safety Report 18050667 (Version 3)
Quarter: 2020Q4

REPORT INFORMATION
  Report Type: Spontaneous
  Country: FR (occurrence: FR)
  Receive Date: 20200721
  Receipt Date: 20201008
  Transmission Date: 20210113
  Serious: Yes (Other)
  Sender: FDA-Public Use
  Company Number: FR-CELGENEUS-FRA-20200702732

PATIENT
  Sex: Female

DRUGS (5)
  1. VIDAZA [Suspect]
     Active Substance: AZACITIDINE
     Indication: ACUTE MYELOID LEUKAEMIA RECURRENT
     Route: 065
     Dates: start: 201906, end: 201912
  2. VIDAZA [Suspect]
     Active Substance: AZACITIDINE
     Indication: OFF LABEL USE
  3. IDHIFA [Suspect]
     Active Substance: ENASIDENIB MESYLATE
     Indication: OFF LABEL USE
     Dosage: 100 MILLIGRAM
     Route: 048
     Dates: start: 20190704, end: 201912
  4. IDHIFA [Suspect]
     Active Substance: ENASIDENIB MESYLATE
     Dosage: 100 MILLIGRAM
     Route: 048
     Dates: start: 202001
  5. IDHIFA [Suspect]
     Active Substance: ENASIDENIB MESYLATE
     Indication: ACUTE MYELOID LEUKAEMIA RECURRENT
     Dosage: 100 MILLIGRAM
     Route: 048
     Dates: start: 201906

REACTIONS (1)
  - Pancytopenia [Unknown]
